FAERS Safety Report 6777830-4 (Version None)
Quarter: 2010Q2

REPORT INFORMATION
  Report Type: 
  Country: None (occurrence: None)
  Receive Date: 20100618
  Receipt Date: 20100603
  Transmission Date: 20101027
  Serious: Yes (Death)
  Sender: FDA-Public Use
  Company Number: US-MYLANLABS-2010S1009794

PATIENT
  Age: 50 Year
  Sex: Male

DRUGS (5)
  1. ADALIMUMAB [Suspect]
     Indication: CROHN'S DISEASE
     Route: 065
  2. MERCAPTOPURINE [Suspect]
     Indication: CROHN'S DISEASE
     Route: 065
  3. MESALAZINE [Concomitant]
     Indication: CROHN'S DISEASE
     Route: 065
  4. HYOSCYAMINE [Concomitant]
     Indication: CROHN'S DISEASE
     Route: 065
  5. FLUCONAZOLE [Concomitant]
     Indication: COCCIDIOIDOMYCOSIS
     Route: 065

REACTIONS (1)
  - COCCIDIOIDOMYCOSIS [None]
